FAERS Safety Report 7130371-7 (Version None)
Quarter: 2010Q4

REPORT INFORMATION
  Report Type: 
  Country: None (occurrence: None)
  Receive Date: 20101116
  Receipt Date: 20101110
  Transmission Date: 20110411
  Serious: Yes (Hospitalization)
  Sender: FDA-Public Use
  Company Number: 2010SP059781

PATIENT
  Age: 61 Year
  Sex: Male

DRUGS (2)
  1. RIBAVIRIN [Suspect]
     Indication: HEPATITIS C
     Dates: start: 20100101
  2. INTERFERON ALFA-2A (INTERFERON ALFA-2A) [Suspect]
     Indication: HEPATITIS C
     Dates: start: 20100101

REACTIONS (1)
  - TYPE 1 DIABETES MELLITUS [None]
